FAERS Safety Report 18807410 (Version 1)
Quarter: 2021Q1

REPORT INFORMATION
  Report Type: Spontaneous
  Country: IN (occurrence: IN)
  Receive Date: 20210129
  Receipt Date: 20210129
  Transmission Date: 20210419
  Serious: Yes (Hospitalization, Other)
  Sender: FDA-Public Use
  Company Number: IN-MICRO LABS LIMITED-ML2021-00200

PATIENT
  Age: 32 Year
  Sex: Male

DRUGS (8)
  1. PHENYTOIN. [Suspect]
     Active Substance: PHENYTOIN
     Indication: SEIZURE
  2. MAGNESIUM [Suspect]
     Active Substance: MAGNESIUM
     Indication: SEIZURE
  3. ATROPINE. [Concomitant]
     Active Substance: ATROPINE
     Indication: CHEMICAL POISONING
  4. SODIUM VALPROATE [Suspect]
     Active Substance: VALPROATE SODIUM
  5. LEVETIRACETAM. [Suspect]
     Active Substance: LEVETIRACETAM
     Indication: SEIZURE
  6. MIDAZOLAM. [Suspect]
     Active Substance: MIDAZOLAM
     Indication: SEIZURE
  7. THIOPENTONE [Suspect]
     Active Substance: THIOPENTAL SODIUM
     Indication: SEIZURE
  8. PRALIDOXIME [Concomitant]
     Active Substance: PRALIDOXIME
     Indication: CHEMICAL POISONING

REACTIONS (1)
  - Drug ineffective [Unknown]
